FAERS Safety Report 11717922 (Version 2)
Quarter: 2015Q4

REPORT INFORMATION
  Report Type: Spontaneous
  Country: JP (occurrence: JP)
  Receive Date: 20151110
  Receipt Date: 20151111
  Transmission Date: 20160304
  Serious: Yes (Other)
  Sender: FDA-Public Use
  Company Number: JP-UCBSA-2015034922

PATIENT
  Age: 47 Year
  Sex: Female

DRUGS (3)
  1. JZOLOFT [Concomitant]
     Active Substance: SERTRALINE HYDROCHLORIDE
     Indication: PRODUCT USED FOR UNKNOWN INDICATION
     Dosage: UNK
     Route: 048
  2. KEPPRA [Suspect]
     Active Substance: LEVETIRACETAM
     Indication: PROPHYLAXIS
     Dosage: 1000 MG, ONCE DAILY (QD)
     Route: 048
  3. SODIUM VALPROATE [Concomitant]
     Active Substance: VALPROATE SODIUM
     Indication: PROPHYLAXIS
     Dosage: 600 MG DAILY
     Route: 048

REACTIONS (2)
  - Femur fracture [Unknown]
  - Bleeding time prolonged [Unknown]
